FAERS Safety Report 5033919-1 (Version None)
Quarter: 2006Q2

REPORT INFORMATION
  Report Type: 
  Country: None (occurrence: None)
  Receive Date: 20060623
  Receipt Date: 20060504
  Transmission Date: 20061013
  Serious: Yes (Hospitalization)
  Sender: FDA-Public Use
  Company Number: DE-BOEHRINGER INGELHEIM PHARMACEUTICALS, INC.-2006-DE-02279DE

PATIENT
  Sex: Male
  Weight: 68 kg

DRUGS (1)
  1. ALNA OCAS [Suspect]
     Indication: BENIGN PROSTATIC HYPERPLASIA

REACTIONS (7)
  - ABDOMINAL DISCOMFORT [None]
  - ANOREXIA [None]
  - BLADDER PAIN [None]
  - DRUG INEFFECTIVE [None]
  - DYSURIA [None]
  - GASTROINTESTINAL DISORDER [None]
  - MEDICATION RESIDUE [None]
